FAERS Safety Report 7525204-0 (Version None)
Quarter: 2011Q2

REPORT INFORMATION
  Report Type: 
  Country: None (occurrence: None)
  Receive Date: 20110606
  Receipt Date: 20110602
  Transmission Date: 20111010
  Serious: Yes (Hospitalization)
  Sender: FDA-Public Use
  Company Number: US-SANOFI-AVENTIS-2011SA030011

PATIENT
  Age: 78 Year
  Sex: Female
  Weight: 68.18 kg

DRUGS (2)
  1. MULTAQ [Suspect]
     Indication: ATRIAL FIBRILLATION
     Route: 048
     Dates: start: 20110506, end: 20110507
  2. ASPIRIN [Concomitant]
     Indication: ANTICOAGULANT THERAPY
     Dates: start: 20090101

REACTIONS (6)
  - POLLAKIURIA [None]
  - ATRIAL FIBRILLATION [None]
  - PYREXIA [None]
  - OEDEMA PERIPHERAL [None]
  - HEART RATE INCREASED [None]
  - FATIGUE [None]
